FAERS Safety Report 15789556 (Version 1)
Quarter: 2018Q4

REPORT INFORMATION
  Report Type: Spontaneous
  Country: US (occurrence: US)
  Receive Date: 20181228
  Receipt Date: 20181228
  Transmission Date: 20190205
  Serious: No
  Sender: FDA-Public Use
  Company Number: None

PATIENT

DRUGS (2)
  1. CYCLOPENTOLATE HCL CYCLOPENTOLATE [Suspect]
     Active Substance: CYCLOPENTOLATE HYDROCHLORIDE
     Route: 047
  2. TROPICAMIDE TROPICAMIDE [Suspect]
     Active Substance: TROPICAMIDE
     Route: 047

REACTIONS (1)
  - Product appearance confusion [None]
